FAERS Safety Report 19503692 (Version 1)
Quarter: 2021Q3

REPORT INFORMATION
  Report Type: Spontaneous
  Country: US (occurrence: US)
  Receive Date: 20210707
  Receipt Date: 20210707
  Transmission Date: 20211014
  Serious: Yes (Other)
  Sender: FDA-Public Use
  Company Number: US-MYLANLABS-2021M1038914

PATIENT
  Age: 67 Year
  Sex: Female

DRUGS (1)
  1. FUROSEMIDE TABLETS USP [Suspect]
     Active Substance: FUROSEMIDE
     Indication: PRODUCT USED FOR UNKNOWN INDICATION
     Dosage: 1 DOSAGE FORM, BID

REACTIONS (5)
  - Gait inability [Unknown]
  - Pain [Unknown]
  - Urinary incontinence [Unknown]
  - Blood cholesterol increased [Unknown]
  - Chronic kidney disease [Unknown]
